FAERS Safety Report 8286783-1 (Version None)
Quarter: 2012Q2

REPORT INFORMATION
  Report Type: 
  Country: None (occurrence: None)
  Receive Date: 20120416
  Receipt Date: 20111129
  Transmission Date: 20120825
  Serious: Yes (Death, Hospitalization)
  Sender: FDA-Public Use
  Company Number: ES-CELGENEUS-144-21880-11114036

PATIENT
  Sex: Female
  Weight: 95 kg

DRUGS (3)
  1. LBH589 [Suspect]
     Indication: MULTIPLE MYELOMA
     Route: 048
     Dates: start: 20091019, end: 20091127
  2. DEXAMETHASONE [Suspect]
     Indication: MULTIPLE MYELOMA
     Route: 048
     Dates: start: 20091019, end: 20091127
  3. REVLIMID [Suspect]
     Indication: MULTIPLE MYELOMA
     Route: 048
     Dates: start: 20091019, end: 20091128

REACTIONS (9)
  - PNEUMONIA [None]
  - PYREXIA [None]
  - PANCYTOPENIA [None]
  - STEM CELL TRANSPLANT [None]
  - LUNG INFILTRATION [None]
  - STAPHYLOCOCCAL SEPSIS [None]
  - LOCALISED INFECTION [None]
  - PULMONARY HAEMORRHAGE [None]
  - FEBRILE NEUTROPENIA [None]
